FAERS Safety Report 17450178 (Version 1)
Quarter: 2020Q1

REPORT INFORMATION
  Report Type: Spontaneous
  Country: US (occurrence: US)
  Receive Date: 20200221
  Receipt Date: 20200221
  Transmission Date: 20200409
  Serious: Yes (Other)
  Sender: FDA-Public Use
  Company Number: None

PATIENT
  Age: 35 Year
  Sex: Female
  Weight: 88.65 kg

DRUGS (1)
  1. METOPROLOL SUCCINATE ER [Suspect]
     Active Substance: METOPROLOL SUCCINATE
     Indication: HYPERTENSION
     Route: 048
     Dates: start: 20200113, end: 20200128

REACTIONS (4)
  - Peripheral swelling [None]
  - Joint swelling [None]
  - Mouth swelling [None]
  - Dyspnoea [None]

NARRATIVE: CASE EVENT DATE: 20200128
